FAERS Safety Report 5701681-2 (Version None)
Quarter: 2008Q2

REPORT INFORMATION
  Report Type: 
  Country: None (occurrence: None)
  Receive Date: 20080409
  Receipt Date: 20080409
  Transmission Date: 20081010
  Serious: No
  Sender: FDA-Public Use
  Company Number: None

PATIENT
  Sex: Male
  Weight: 101.5 kg

DRUGS (16)
  1. CYCLOPHOSPHAMIDE [Suspect]
     Dosage: 1452 MG
  2. NEULASTA [Suspect]
     Dosage: 85 MG
  3. PREDNISONE [Suspect]
     Dosage: 450 MG
  4. RITUXIMAB (MOAB C2B8 ANTI CD20, CHIMERIC) [Suspect]
     Dosage: 900 MG
  5. VINCRISTINE SULFATE [Suspect]
     Dosage: 2 MG
  6. ALPHA LIPOIC ACID [Concomitant]
  7. AMBIEN [Concomitant]
  8. AMOXICILLIN [Concomitant]
  9. CENTRUM [Concomitant]
  10. COZAAR [Concomitant]
  11. GLUCOSAMINE SULFATE [Concomitant]
  12. LOPRESSOR [Concomitant]
  13. OMEGA 3 [Concomitant]
  14. PROTONIX [Concomitant]
  15. ASCORBIC ACID [Concomitant]
  16. ZETIA [Concomitant]

REACTIONS (1)
  - ACUTE MYELOID LEUKAEMIA [None]
